FAERS Safety Report 4440993-X (Version None)
Quarter: 2004Q3

REPORT INFORMATION
  Report Type: 
  Country: None (occurrence: None)
  Receive Date: 20040728
  Receipt Date: 20040414
  Transmission Date: 20050211
  Serious: No
  Sender: FDA-Public Use
  Company Number: USA040464999

PATIENT
  Age: 9 Year
  Sex: Male

DRUGS (4)
  1. STRATTERA [Suspect]
     Indication: ATTENTION DEFICIT/HYPERACTIVITY DISORDER
     Dosage: 25 MG/L DAY
  2. ZOLOFT [Concomitant]
  3. CLONIDINE HCL [Concomitant]
  4. KLONOPIN [Concomitant]

REACTIONS (2)
  - INTENTIONAL SELF-INJURY [None]
  - PRIAPISM [None]
